FAERS Safety Report 4770911-6 (Version None)
Quarter: 2005Q3

REPORT INFORMATION
  Report Type: 
  Country: None (occurrence: None)
  Receive Date: 20050914
  Receipt Date: 20050830
  Transmission Date: 20060218
  Serious: Yes (Death, Other)
  Sender: FDA-Public Use
  Company Number: DE_050816812

PATIENT
  Age: 52 Year
  Sex: Female

DRUGS (3)
  1. GEMZAR [Suspect]
     Indication: PANCREATIC CARCINOMA
     Dosage: 1000 MG/M2
     Dates: start: 20050301, end: 20050601
  2. MORPHINE [Concomitant]
  3. FENTANYL [Concomitant]

REACTIONS (10)
  - CONVULSION [None]
  - ENCEPHALITIS BRAIN STEM [None]
  - LIVER ABSCESS [None]
  - MALIGNANT NEOPLASM PROGRESSION [None]
  - MEDICAL DEVICE COMPLICATION [None]
  - OPPORTUNISTIC INFECTION [None]
  - PANCREATIC CARCINOMA [None]
  - PARANEOPLASTIC SYNDROME [None]
  - PSEUDOMONAS INFECTION [None]
  - VOMITING [None]
